FAERS Safety Report 7944548-1 (Version None)
Quarter: 2011Q4

REPORT INFORMATION
  Report Type: 
  Country: None (occurrence: None)
  Receive Date: 20111114
  Receipt Date: 20110809
  Transmission Date: 20120403
  Serious: No
  Sender: FDA-Public Use
  Company Number: 1000022770

PATIENT
  Age: 62 Year
  Sex: Female
  Weight: 66.68 kg

DRUGS (2)
  1. TRAZODONE (TRAZODONE) (TRAZODONE) [Concomitant]
  2. SAVELLA [Suspect]
     Indication: FIBROMYALGIA
     Dosage: 12.5 MG (12.5 MG, 1 IN 1 D), ORAL
     Route: 048
     Dates: start: 20110301

REACTIONS (4)
  - TEMPERATURE INTOLERANCE [None]
  - HYPERHIDROSIS [None]
  - WEIGHT DECREASED [None]
  - DECREASED APPETITE [None]
